FAERS Safety Report 14395125 (Version 1)
Quarter: 2018Q1

REPORT INFORMATION
  Report Type: Spontaneous
  Country: JP (occurrence: JP)
  Receive Date: 20180116
  Receipt Date: 20180116
  Transmission Date: 20180509
  Serious: Yes (Death, Other)
  Sender: FDA-Public Use
  Company Number: JP-SA-2018SA008832

PATIENT
  Sex: Female

DRUGS (26)
  1. MEPOLIZUMAB [Suspect]
     Active Substance: MEPOLIZUMAB
     Indication: ASTHMA
     Route: 058
     Dates: start: 20171005, end: 20171005
  2. THEOPHYLLINE [Concomitant]
     Active Substance: THEOPHYLLINE ANHYDROUS
  3. BETAMETHASONE. [Concomitant]
     Active Substance: BETAMETHASONE
  4. XYZALL [Suspect]
     Active Substance: LEVOCETIRIZINE DIHYDROCHLORIDE
     Indication: PRODUCT USED FOR UNKNOWN INDICATION
     Route: 048
  5. AMBROXOL HYDROCHLORIDE [Concomitant]
     Active Substance: AMBROXOL HYDROCHLORIDE
  6. BENIDIPINE HYDROCHLORIDE [Concomitant]
     Active Substance: BENIDIPINE HYDROCHLORIDE
  7. MOSAPRIDE CITRATE [Concomitant]
     Active Substance: MOSAPRIDE CITRATE
     Route: 065
  8. MEPOLIZUMAB [Suspect]
     Active Substance: MEPOLIZUMAB
     Indication: ASTHMA
     Route: 058
     Dates: start: 20171109, end: 20171109
  9. EDIROL [Concomitant]
     Active Substance: ELDECALCITOL
     Route: 065
  10. SOLIFENACIN SUCCINATE. [Concomitant]
     Active Substance: SOLIFENACIN SUCCINATE
  11. FUROSEMIDE. [Concomitant]
     Active Substance: FUROSEMIDE
     Route: 065
  12. CEFAZOLIN SODIUM. [Concomitant]
     Active Substance: CEFAZOLIN SODIUM
  13. VENOGLOBULIN [Concomitant]
     Active Substance: HUMAN IMMUNOGLOBULIN G
     Route: 065
     Dates: start: 20171124, end: 20171126
  14. RELVAR ELLIPTA [Suspect]
     Active Substance: FLUTICASONE FUROATE\VILANTEROL TRIFENATATE
     Indication: PRODUCT USED FOR UNKNOWN INDICATION
     Dosage: DOSAGE FORM:INHALATION POWDER?ROUTE:RESPIRATORY
  15. VOGLIBOSE/MITIGLINIDE CALCIUM [Concomitant]
  16. PRANLUKAST [Concomitant]
     Active Substance: PRANLUKAST
     Route: 065
  17. CLARITHROMYCIN. [Concomitant]
     Active Substance: CLARITHROMYCIN
     Route: 065
  18. NICORANDIL [Concomitant]
     Active Substance: NICORANDIL
  19. SPIRONOLACTONE. [Concomitant]
     Active Substance: SPIRONOLACTONE
     Route: 065
  20. ISOSORBIDE DINITRATE. [Concomitant]
     Active Substance: ISOSORBIDE DINITRATE
  21. SOLANTAL [Concomitant]
     Active Substance: TIARAMIDE
     Route: 065
  22. NEXIUM [Concomitant]
     Active Substance: ESOMEPRAZOLE MAGNESIUM
     Route: 065
  23. GLACTIV [Concomitant]
     Active Substance: SITAGLIPTIN
  24. BROTIZOLAM [Concomitant]
     Active Substance: BROTIZOLAM
  25. PREDONINE [Concomitant]
     Active Substance: PREDNISOLONE
     Route: 065
  26. ALENDRONATE [Concomitant]
     Active Substance: ALENDRONATE SODIUM

REACTIONS (12)
  - Haemoptysis [Unknown]
  - Hypoaesthesia [Unknown]
  - Pulmonary alveolar haemorrhage [Unknown]
  - Pyrexia [Recovering/Resolving]
  - Cellulitis [Recovering/Resolving]
  - Dyspnoea [Unknown]
  - Bacteraemia [Recovering/Resolving]
  - Interstitial lung disease [Fatal]
  - Weight increased [Unknown]
  - Asthma [Unknown]
  - Respiratory failure [Unknown]
  - Cardiac failure [Unknown]

NARRATIVE: CASE EVENT DATE: 2017
